FAERS Safety Report 20482884 (Version 1)
Quarter: 2022Q1

REPORT INFORMATION
  Report Type: Spontaneous
  Country: US (occurrence: US)
  Receive Date: 20220217
  Receipt Date: 20220217
  Transmission Date: 20220424
  Serious: Yes (Other)
  Sender: FDA-Public Use
  Company Number: US-GLAXOSMITHKLINE-US2022GSK028511

PATIENT
  Sex: Male

DRUGS (7)
  1. ZANTAC [Suspect]
     Active Substance: RANITIDINE HYDROCHLORIDE
     Dosage: UNK, BID
     Route: 065
     Dates: start: 201101, end: 201912
  2. ZANTAC [Suspect]
     Active Substance: RANITIDINE HYDROCHLORIDE
     Dosage: UNK, BID
     Route: 065
     Dates: start: 201101, end: 201912
  3. ZANTAC [Suspect]
     Active Substance: RANITIDINE HYDROCHLORIDE
     Dosage: UNK, BID
     Route: 065
     Dates: start: 201101, end: 201912
  4. RANITIDINE [Suspect]
     Active Substance: RANITIDINE
     Dosage: 40 MG|BOTH
     Route: 065
     Dates: start: 201101, end: 201912
  5. RANITIDINE [Suspect]
     Active Substance: RANITIDINE
     Dosage: UNK, BID
     Route: 065
     Dates: start: 201101, end: 201912
  6. RANITIDINE [Suspect]
     Active Substance: RANITIDINE
     Dosage: UNK, BID
     Route: 065
     Dates: start: 201101, end: 201912
  7. RANITIDINE [Suspect]
     Active Substance: RANITIDINE
     Dosage: UNK, BID
     Route: 065
     Dates: start: 201101, end: 201912

REACTIONS (1)
  - Bladder cancer [Unknown]
